FAERS Safety Report 6667090-7 (Version None)
Quarter: 2010Q2

REPORT INFORMATION
  Report Type: 
  Country: None (occurrence: None)
  Receive Date: 20100405
  Receipt Date: 20100326
  Transmission Date: 20101027
  Serious: Yes (Hospitalization)
  Sender: FDA-Public Use
  Company Number: KR-BRISTOL-MYERS SQUIBB COMPANY-14801773

PATIENT
  Age: 65 Year
  Sex: Male
  Weight: 54 kg

DRUGS (3)
  1. CETUXIMAB [Suspect]
     Indication: GASTROOESOPHAGEAL CANCER
     Dosage: 3RD CYCLE-20AUG09;RECENT INF-11SEP09; 5MG/ML
     Route: 042
     Dates: start: 20090617
  2. CISPLATIN [Suspect]
     Indication: GASTROOESOPHAGEAL CANCER
     Dosage: DAY 1 OF CYCLE
     Route: 042
     Dates: start: 20090617, end: 20090709
  3. XELODA [Suspect]
     Indication: GASTROOESOPHAGEAL CANCER
     Dosage: RECENT INF-14SEP09; DAY 1-15; TAB
     Route: 048
     Dates: start: 20090617

REACTIONS (1)
  - PULMONARY EMBOLISM [None]
